FAERS Safety Report 20125085 (Version 5)
Quarter: 2022Q1

REPORT INFORMATION
  Report Type: Report from Study
  Country: US (occurrence: US)
  Receive Date: 20211129
  Receipt Date: 20220322
  Transmission Date: 20220423
  Serious: Yes (Life-Threatening, Hospitalization)
  Sender: FDA-Public Use
  Company Number: US-PFIZER INC-202101648868

PATIENT
  Age: 17 Year
  Sex: Male
  Weight: 61.4 kg

DRUGS (7)
  1. VINCRISTINE SULFATE [Suspect]
     Active Substance: VINCRISTINE SULFATE
     Indication: Philadelphia positive acute lymphocytic leukaemia
     Dosage: 2 MG, SINGLE (ONCE)
     Route: 042
     Dates: start: 20200420
  2. METHOTREXATE SODIUM [Suspect]
     Active Substance: METHOTREXATE SODIUM
     Indication: Philadelphia positive acute lymphocytic leukaemia
     Dosage: 15 MG, SINGLE
     Route: 037
     Dates: start: 20200420
  3. METHOTREXATE SODIUM [Suspect]
     Active Substance: METHOTREXATE SODIUM
     Indication: Philadelphia positive acute lymphocytic leukaemia
     Dosage: 330 MG, SINGLE
     Route: 042
     Dates: start: 20200420
  4. PEGASPARGASE [Suspect]
     Active Substance: PEGASPARGASE
     Indication: Philadelphia positive acute lymphocytic leukaemia
     Dosage: 2500 IU
     Route: 042
     Dates: start: 20190906, end: 20200420
  5. RUXOLITINIB [Suspect]
     Active Substance: RUXOLITINIB
     Indication: Philadelphia positive acute lymphocytic leukaemia
     Dosage: 80 MG, BID
     Route: 048
     Dates: start: 20190826, end: 20200424
  6. RUXOLITINIB [Suspect]
     Active Substance: RUXOLITINIB
     Dosage: 80 MG, BID
     Route: 048
     Dates: start: 20200504
  7. SULFAMETHOXAZOLE\TRIMETHOPRIM [Concomitant]
     Active Substance: SULFAMETHOXAZOLE\TRIMETHOPRIM
     Dosage: UNK
     Dates: start: 201706

REACTIONS (4)
  - Pneumonia [Recovered/Resolved]
  - COVID-19 [Recovered/Resolved]
  - Pyrexia [Recovered/Resolved]
  - Hypotension [Recovered/Resolved]

NARRATIVE: CASE EVENT DATE: 20200424
